FAERS Safety Report 14219918 (Version 3)
Quarter: 2018Q1

REPORT INFORMATION
  Report Type: Report from Study
  Country: US (occurrence: US)
  Receive Date: 20171123
  Receipt Date: 20180306
  Transmission Date: 20180508
  Serious: No
  Sender: FDA-Public Use
  Company Number: US-AMGEN-USASL2017168519

PATIENT
  Age: 58 Year
  Sex: Male

DRUGS (3)
  1. DRAMAMINE [Concomitant]
     Active Substance: DIMENHYDRINATE
     Indication: SPEECH DISORDER
  2. REPATHA [Suspect]
     Active Substance: EVOLOCUMAB
     Indication: HYPERCHOLESTEROLAEMIA
     Dosage: 140 MG, Q2WK
     Route: 058
     Dates: start: 20170617
  3. DRAMAMINE [Concomitant]
     Active Substance: DIMENHYDRINATE
     Indication: GAIT DISTURBANCE
     Dosage: UNK

REACTIONS (10)
  - Hypoaesthesia [Unknown]
  - Heart rate abnormal [Unknown]
  - Vertigo [Unknown]
  - Muscle disorder [Unknown]
  - Headache [Unknown]
  - Blood pressure increased [Unknown]
  - Tinnitus [Unknown]
  - Dizziness [Unknown]
  - Muscle spasms [Unknown]
  - Pain in extremity [Recovering/Resolving]

NARRATIVE: CASE EVENT DATE: 2017
